FAERS Safety Report 12924778 (Version 2)
Quarter: 2017Q1

REPORT INFORMATION
  Report Type: Report from Study
  Country: JP (occurrence: JP)
  Receive Date: 20161109
  Receipt Date: 20170123
  Transmission Date: 20170428
  Serious: Yes (Hospitalization)
  Sender: FDA-Public Use
  Company Number: JP-ACTELION-A-CH2016-133695

PATIENT
  Age: 82 Year
  Sex: Female
  Weight: 82 kg

DRUGS (20)
  1. AMLODIPINE [Concomitant]
     Active Substance: AMLODIPINE BESYLATE
  2. OXYGEN. [Concomitant]
     Active Substance: OXYGEN
  3. CEFZON [Concomitant]
     Active Substance: CEFDINIR
     Dosage: UNK
     Dates: start: 20151201, end: 20151209
  4. NEXIUM [Concomitant]
     Active Substance: ESOMEPRAZOLE MAGNESIUM
  5. FUROSEMIDE. [Concomitant]
     Active Substance: FUROSEMIDE
  6. FEXOFENADINE HYDROCHLORIDE. [Concomitant]
     Active Substance: FEXOFENADINE HYDROCHLORIDE
  7. TRACLEER [Concomitant]
     Active Substance: BOSENTAN
     Indication: PULMONARY ARTERIAL HYPERTENSION
     Dosage: 62.5 MG, UNK
  8. OPSUMIT [Suspect]
     Active Substance: MACITENTAN
     Indication: PULMONARY ARTERIAL HYPERTENSION
     Dosage: 10 MG, OD
     Route: 048
     Dates: start: 20150616, end: 20160203
  9. CEFAZOLIN SODIUM. [Concomitant]
     Active Substance: CEFAZOLIN SODIUM
  10. EPOPROSTENOL ACT [Suspect]
     Active Substance: EPOPROSTENOL
     Indication: PULMONARY ARTERIAL HYPERTENSION
     Dosage: 12.72 NG/KG, CONT INFUS
     Route: 042
     Dates: start: 20150825
  11. EPOPROSTENOL ACT [Suspect]
     Active Substance: EPOPROSTENOL
     Dosage: 0.2 NG/KG, CONT INFUS
     Route: 042
     Dates: start: 20150722, end: 20150824
  12. URSO [Concomitant]
     Active Substance: URSODIOL
  13. TEPRENONE [Concomitant]
     Active Substance: TEPRENONE
  14. CARELOAD [Concomitant]
     Active Substance: BERAPROST SODIUM
  15. TRAZENTA [Concomitant]
     Active Substance: LINAGLIPTIN
  16. ADCIRCA [Concomitant]
     Active Substance: TADALAFIL
  17. SPIRONOLACTONE. [Concomitant]
     Active Substance: SPIRONOLACTONE
  18. DOBUTAMINE [Concomitant]
     Active Substance: DOBUTAMINE\DOBUTAMINE HYDROCHLORIDE
  19. FERROUS CITRATE [Concomitant]
     Active Substance: FERROUS CITRATE
  20. HUMAN RED BLOOD CELLS [Concomitant]
     Active Substance: HUMAN RED BLOOD CELL

REACTIONS (5)
  - Drug eruption [Recovering/Resolving]
  - Organising pneumonia [Recovered/Resolved]
  - Blepharitis [Recovering/Resolving]
  - Rheumatoid arthritis [Recovering/Resolving]
  - Hyperuricaemia [Recovered/Resolved]

NARRATIVE: CASE EVENT DATE: 20150616
